FAERS Safety Report 10076776 (Version 1)
Quarter: 2014Q2

REPORT INFORMATION
  Report Type: Spontaneous
  Country: FR (occurrence: FR)
  Receive Date: 20140414
  Receipt Date: 20140414
  Transmission Date: 20141212
  Serious: Yes (Hospitalization)
  Sender: FDA-Public Use
  Company Number: FR-PFIZER INC-2014098883

PATIENT
  Age: 74 Year
  Sex: Female

DRUGS (12)
  1. ZYVOXID [Suspect]
     Indication: DEVICE RELATED INFECTION
     Dosage: 600 MG, 2X/DAY
     Route: 048
     Dates: start: 20140111, end: 20140209
  2. METFORMIN HCL [Suspect]
     Dosage: 500 MG, 2X/DAY
     Route: 048
     Dates: end: 20140209
  3. ESIDREX [Concomitant]
     Dosage: UNK
     Dates: end: 20140209
  4. EUPANTOL [Concomitant]
     Dosage: UNK
     Dates: end: 20140209
  5. IMOVANE [Concomitant]
     Dosage: UNK
     Dates: end: 20140209
  6. JANUVIA [Concomitant]
     Dosage: UNK
     Dates: end: 20140209
  7. KARDEGIC [Concomitant]
     Dosage: UNK
     Dates: end: 20140209
  8. LANTUS [Concomitant]
     Dosage: UNK
     Dates: end: 20140209
  9. LOXEN [Concomitant]
     Dosage: UNK
     Dates: end: 20140209
  10. PAROXETINE [Concomitant]
     Dosage: UNK
     Dates: end: 20140209
  11. PERINDOPRIL [Concomitant]
     Dosage: UNK
     Dates: end: 20140209
  12. TAHOR [Concomitant]
     Dosage: UNK
     Dates: end: 20140209

REACTIONS (3)
  - Hepatocellular injury [Recovering/Resolving]
  - Lactic acidosis [Recovered/Resolved]
  - Cholestasis [Recovering/Resolving]
